FAERS Safety Report 10723998 (Version 1)
Quarter: 2015Q1

REPORT INFORMATION
  Report Type: Spontaneous
  Country: US (occurrence: None)
  Receive Date: 20150116
  Receipt Date: 20150116
  Transmission Date: 20150721
  Serious: Yes (Disabling)
  Sender: FDA-Public Use
  Company Number: None

PATIENT
  Age: 47 Year
  Sex: Female
  Weight: 63.05 kg

DRUGS (1)
  1. MAGNEVIST [Suspect]
     Active Substance: GADOPENTETATE DIMEGLUMINE
     Indication: NUCLEAR MAGNETIC RESONANCE IMAGING BREAST
     Dosage: 20CC ONE TIME DOSE INTO A VEIN
     Route: 042
     Dates: start: 20141204

REACTIONS (9)
  - Headache [None]
  - Skin induration [None]
  - Arthralgia [None]
  - Tendon pain [None]
  - No therapeutic response [None]
  - Condition aggravated [None]
  - Lymphoedema [None]
  - Pain in extremity [None]
  - Emotional disorder [None]

NARRATIVE: CASE EVENT DATE: 20141212
